FAERS Safety Report 10156458 (Version 1)
Quarter: 2014Q2

REPORT INFORMATION
  Report Type: Report from Study
  Country: US (occurrence: US)
  Receive Date: 20140507
  Receipt Date: 20140507
  Transmission Date: 20141212
  Serious: Yes (Other)
  Sender: FDA-Public Use
  Company Number: US-ROCHE-1391813

PATIENT
  Age: 68 Year
  Sex: Female

DRUGS (6)
  1. ACTEMRA [Suspect]
     Indication: RHEUMATOID ARTHRITIS
     Route: 042
     Dates: start: 201401, end: 20140228
  2. BENADRYL (UNITED STATES) [Suspect]
     Indication: FEELING COLD
     Route: 042
     Dates: start: 20140228
  3. BENADRYL (UNITED STATES) [Suspect]
     Indication: ANXIETY
     Route: 048
     Dates: start: 20140228
  4. BENADRYL (UNITED STATES) [Suspect]
     Indication: TREMOR
  5. BENADRYL (UNITED STATES) [Suspect]
     Indication: BLOOD PRESSURE INCREASED
  6. MEDROL [Concomitant]
     Route: 042
     Dates: start: 20140228

REACTIONS (6)
  - Feeling cold [Recovered/Resolved]
  - Anxiety [Recovered/Resolved]
  - Tremor [Recovered/Resolved]
  - Blood pressure increased [Recovered/Resolved]
  - Dry mouth [Unknown]
  - Chest discomfort [Unknown]
